FAERS Safety Report 5677598-9 (Version None)
Quarter: 2008Q1

REPORT INFORMATION
  Report Type: 
  Country: None (occurrence: None)
  Receive Date: 20080324
  Receipt Date: 20071012
  Transmission Date: 20080703
  Serious: No
  Sender: FDA-Public Use
  Company Number: US-ABBOTT-07P-163-0420979-00

PATIENT
  Sex: Male
  Weight: 73.548 kg

DRUGS (6)
  1. DEPAKENE [Suspect]
     Indication: CONVULSION
     Route: 048
     Dates: start: 20070727
  2. DEPAKENE [Suspect]
     Indication: BIPOLAR DISORDER
  3. DEPAKOTE [Suspect]
     Indication: CONVULSION
     Route: 048
     Dates: start: 19970101, end: 20070727
  4. DEPAKOTE [Suspect]
     Indication: BIPOLAR DISORDER
  5. FLU VACCINE [Suspect]
     Indication: IMMUNISATION
     Route: 030
     Dates: start: 20071009, end: 20071009
  6. WARFARIN SODIUM [Concomitant]
     Indication: ATRIAL FIBRILLATION
     Route: 048

REACTIONS (2)
  - RASH [None]
  - RASH PRURITIC [None]
